FAERS Safety Report 10249117 (Version 3)
Quarter: 2014Q3

REPORT INFORMATION
  Report Type: Report from Study
  Country: FR (occurrence: FR)
  Receive Date: 20140620
  Receipt Date: 20140703
  Transmission Date: 20150326
  Serious: Yes (Other)
  Sender: FDA-Public Use
  Company Number: PHHY2013FR068936

PATIENT
  Age: 88 Year
  Sex: Female
  Weight: 59 kg

DRUGS (10)
  1. PROPOLIS [Concomitant]
     Active Substance: PROPOLIS WAX
     Dosage: UNK
     Dates: start: 2012
  2. GINKGO EXTRACT\HEPTAMINOL\TROXERUTIN [Concomitant]
     Active Substance: GINKGO\HEPTAMINOL\TROXERUTIN
     Dates: start: 2011, end: 201205
  3. PAC [Concomitant]
     Dates: start: 2012
  4. DIOSMINE [Concomitant]
     Active Substance: HESPERIDIN
     Dates: start: 2011, end: 2011
  5. VOLTAREN [Concomitant]
     Active Substance: DICLOFENAC SODIUM
     Dosage: UNK
     Dates: start: 1990, end: 201106
  6. OGASTORO [Concomitant]
     Active Substance: LANSOPRAZOLE
     Dates: start: 2009, end: 2011
  7. EFFERALGAN [Concomitant]
     Active Substance: ACETAMINOPHEN
     Dates: start: 1990, end: 2011
  8. CALCIUM [Concomitant]
     Active Substance: CALCIUM
     Dosage: UNK
     Dates: start: 2011
  9. ACLASTA [Suspect]
     Active Substance: ZOLEDRONIC ACID
     Indication: OSTEOPOROSIS
     Route: 042
     Dates: start: 201103
  10. DICLOFENAC [Concomitant]
     Active Substance: DICLOFENAC
     Dates: start: 2011

REACTIONS (2)
  - Wrist fracture [Recovered/Resolved]
  - Fall [Unknown]

NARRATIVE: CASE EVENT DATE: 20120713
